FAERS Safety Report 17614580 (Version 1)
Quarter: 2020Q2

REPORT INFORMATION
  Report Type: Report from Study
  Country: None (occurrence: US)
  Receive Date: 20200402
  Receipt Date: 20200402
  Transmission Date: 20200713
  Serious: Yes (Other)
  Sender: FDA-Public Use
  Company Number: US-ABBVIE-20K-163-3339240-00

PATIENT
  Age: 50 Year
  Sex: Female

DRUGS (1)
  1. HUMIRA [Suspect]
     Active Substance: ADALIMUMAB
     Indication: HIDRADENITIS
     Route: 058

REACTIONS (5)
  - Coronavirus infection [Unknown]
  - Pain [Unknown]
  - Pulmonary oedema [Unknown]
  - Hidradenitis [Recovering/Resolving]
  - Nocturnal dyspnoea [Unknown]

NARRATIVE: CASE EVENT DATE: 201911
